FAERS Safety Report 4829658-X (Version None)
Quarter: 2005Q4

REPORT INFORMATION
  Report Type: 
  Country: None (occurrence: None)
  Receive Date: 20051116
  Receipt Date: 20050930
  Transmission Date: 20060501
  Serious: Yes (Hospitalization)
  Sender: FDA-Public Use
  Company Number: US-MERCK-0510USA00696

PATIENT
  Age: 59 Year
  Sex: Female
  Weight: 143 kg

DRUGS (15)
  1. VIOXX [Suspect]
     Indication: ARTHRITIS
     Route: 048
     Dates: start: 20030915, end: 20040526
  2. AMITRIPTYLINE HYDROCHLORIDE [Concomitant]
     Route: 048
  3. AVAPRO [Concomitant]
     Route: 048
  4. CEPHALEXIN [Concomitant]
     Route: 048
  5. CLONIDINE [Concomitant]
     Route: 048
  6. LASIX [Concomitant]
     Route: 048
  7. LOTRISONE [Concomitant]
     Route: 061
  8. MOTRIN [Concomitant]
     Route: 048
  9. POTASSIUM CHLORIDE [Concomitant]
     Route: 048
  10. PROCARDIA [Concomitant]
     Route: 048
  11. ACETAMINOPHEN AND PROPOXYPHENE NAPSYLATE [Concomitant]
     Route: 048
  12. TEQUIN [Concomitant]
     Route: 048
  13. VICODIN ES [Concomitant]
     Route: 048
  14. XANAX [Concomitant]
     Route: 048
  15. ZANAFLEX [Concomitant]
     Route: 048

REACTIONS (1)
  - MYOCARDIAL INFARCTION [None]
